FAERS Safety Report 6127282-2 (Version None)
Quarter: 2009Q1

REPORT INFORMATION
  Report Type: 
  Country: None (occurrence: None)
  Receive Date: 20090319
  Receipt Date: 20090305
  Transmission Date: 20090719
  Serious: Yes (Hospitalization)
  Sender: FDA-Public Use
  Company Number: 02100-JPN-07-0158

PATIENT
  Age: 82 Year
  Sex: Female

DRUGS (1)
  1. PLAVIX [Suspect]
     Indication: CEREBROVASCULAR STENOSIS
     Dosage: 75 MG, DAILY DOSE, ORAL : 75 MG, DAILY DOSE : ORAL
     Route: 048
     Dates: start: 20061108, end: 20070212

REACTIONS (3)
  - POST PROCEDURAL HAEMORRHAGE [None]
  - RECTAL CANCER [None]
  - RECTAL HAEMORRHAGE [None]
